FAERS Safety Report 5887365-9 (Version None)
Quarter: 2008Q3

REPORT INFORMATION
  Report Type: 
  Country: None (occurrence: None)
  Receive Date: 20080917
  Receipt Date: 20080917
  Transmission Date: 20090109
  Serious: No
  Sender: FDA-Public Use
  Company Number: None

PATIENT
  Age: 67 Year
  Sex: Female

DRUGS (8)
  1. LAMISIL [Suspect]
     Indication: ONYCHOMYCOSIS
     Dosage: 1 TAB ONCE QD ORAL
     Route: 048
     Dates: start: 20080530, end: 20080902
  2. ASPIRIN [Concomitant]
  3. CALCIUM GLUCONATE [Concomitant]
  4. MULTI-VITAMIN [Concomitant]
  5. DARVOCET-N 100 [Concomitant]
  6. NAPROSYN [Concomitant]
  7. GLUCOSAMINE SULFATE [Concomitant]
  8. PEPCID [Concomitant]

REACTIONS (1)
  - ALOPECIA [None]
